FAERS Safety Report 16237625 (Version 1)
Quarter: 2019Q2

REPORT INFORMATION
  Report Type: Spontaneous
  Country: PL (occurrence: PL)
  Receive Date: 20190425
  Receipt Date: 20190425
  Transmission Date: 20190711
  Serious: Yes (Hospitalization, Other)
  Sender: FDA-Public Use
  Company Number: PL-JAZZ-2019-PL-005492

PATIENT
  Age: 1 Month
  Sex: Female
  Weight: 2.9 kg

DRUGS (1)
  1. ASPARAGINASE [Suspect]
     Active Substance: ASPARAGINASE
     Indication: LYMPHOCYTIC LEUKAEMIA
     Dosage: 1000 UNITS/M?
     Route: 042
     Dates: start: 20161114, end: 20161114

REACTIONS (2)
  - Oxygen saturation decreased [Recovered/Resolved]
  - Oedema [Recovered/Resolved]

NARRATIVE: CASE EVENT DATE: 20161114
